FAERS Safety Report 5899706-7 (Version None)
Quarter: 2008Q3

REPORT INFORMATION
  Report Type: 
  Country: None (occurrence: None)
  Receive Date: 20080919
  Receipt Date: 20080624
  Transmission Date: 20090109
  Serious: No
  Sender: FDA-Public Use
  Company Number: US-WYE-H04313808

PATIENT
  Age: 52 Year
  Sex: Female

DRUGS (4)
  1. PRISTIQ [Suspect]
     Indication: DEPRESSION
     Dosage: 50 MG 1X PER 1 DAY, ORAL ; CUT TABLET IN HALF, ORAL
     Route: 048
     Dates: start: 20080519, end: 20080523
  2. PRISTIQ [Suspect]
     Indication: DEPRESSION
     Dosage: 50 MG 1X PER 1 DAY, ORAL ; CUT TABLET IN HALF, ORAL
     Route: 048
     Dates: start: 20080524
  3. ACTONEL [Concomitant]
  4. MULTI-VITAMINS [Concomitant]

REACTIONS (2)
  - EARLY MORNING AWAKENING [None]
  - WRONG TECHNIQUE IN DRUG USAGE PROCESS [None]
